FAERS Safety Report 5341306-1 (Version None)
Quarter: 2007Q2

REPORT INFORMATION
  Report Type: 
  Country: None (occurrence: None)
  Receive Date: 20070530
  Receipt Date: 20070516
  Transmission Date: 20071010
  Serious: Yes (Other)
  Sender: FDA-Public Use
  Company Number: GXKR2007US04384

PATIENT
  Age: 54 Year
  Sex: Female

DRUGS (2)
  1. METHYLPREDNISOLONE [Suspect]
     Indication: MULTIPLE SCLEROSIS
     Dosage: BIMONTHLY 1000 MG DAILY FOR 3 DAYS, INTRAVENOUS
     Route: 042
  2. LEVOTHYROXINE SODIUM [Concomitant]

REACTIONS (4)
  - FATIGUE [None]
  - HEPATIC NECROSIS [None]
  - HEPATITIS [None]
  - IDIOSYNCRATIC DRUG REACTION [None]
